FAERS Safety Report 17905484 (Version 2)
Quarter: 2021Q2

REPORT INFORMATION
  Report Type: Spontaneous
  Country: US (occurrence: US)
  Receive Date: 20200616
  Receipt Date: 20210617
  Transmission Date: 20210717
  Serious: Yes (Other)
  Sender: FDA-Public Use
  Company Number: US-ROCHE-2341510

PATIENT
  Sex: Female

DRUGS (6)
  1. TYMLOS [Suspect]
     Active Substance: ABALOPARATIDE
     Indication: RHEUMATOID ARTHRITIS
  2. ACTEMRA [Suspect]
     Active Substance: TOCILIZUMAB
     Indication: GIANT CELL ARTERITIS
     Dosage: 162 MG/ 0.9 ML
     Route: 058
     Dates: start: 20190206
  3. FAMOTIDINE. [Suspect]
     Active Substance: FAMOTIDINE
     Indication: PRODUCT USED FOR UNKNOWN INDICATION
     Route: 065
  4. ACTEMRA [Suspect]
     Active Substance: TOCILIZUMAB
     Indication: RHEUMATOID ARTHRITIS
     Dosage: 162 MG/ 0.9 ML
     Route: 058
     Dates: start: 20190207
  5. TYMLOS [Suspect]
     Active Substance: ABALOPARATIDE
     Indication: SENILE OSTEOPOROSIS
     Route: 058
     Dates: start: 20200212
  6. TYMLOS [Suspect]
     Active Substance: ABALOPARATIDE
     Indication: OSTEOARTHRITIS

REACTIONS (22)
  - Blood calcium increased [Unknown]
  - Dizziness [Unknown]
  - Peripheral swelling [Unknown]
  - Blood triglycerides increased [Unknown]
  - Oropharyngeal pain [Unknown]
  - Myalgia [Unknown]
  - Tinnitus [Unknown]
  - Diverticulitis [Unknown]
  - Paraesthesia [Unknown]
  - Arthralgia [Unknown]
  - Sinus disorder [Unknown]
  - Weight increased [Unknown]
  - Insomnia [Unknown]
  - Hypoaesthesia [Unknown]
  - Depression [Unknown]
  - Mouth ulceration [Unknown]
  - Pulse abnormal [Unknown]
  - Hypertension [Unknown]
  - Headache [Unknown]
  - Vertigo [Unknown]
  - Irritability [Unknown]
  - Fatigue [Unknown]
